FAERS Safety Report 10441604 (Version 1)
Quarter: 2014Q3

REPORT INFORMATION
  Report Type: Spontaneous
  Country: US (occurrence: None)
  Receive Date: 20140908
  Receipt Date: 20140908
  Transmission Date: 20150326
  Serious: No
  Sender: FDA-Public Use
  Company Number: None

PATIENT
  Age: 65 Year
  Sex: Male
  Weight: 99.79 kg

DRUGS (1)
  1. FLUTICASONE NASAL SPRAY 50 MCG ROXANE [Suspect]
     Active Substance: FLUTICASONE\FLUTICASONE PROPIONATE
     Indication: NASOPHARYNGITIS
     Dosage: 2 SPRAYS, ONCE DAILY, INHALATION
     Route: 055
     Dates: start: 20140817, end: 20140903

REACTIONS (2)
  - Epistaxis [None]
  - Rhinalgia [None]

NARRATIVE: CASE EVENT DATE: 20140903
